FAERS Safety Report 18263312 (Version 1)
Quarter: 2020Q3

REPORT INFORMATION
  Report Type: Spontaneous
  Country: US (occurrence: US)
  Receive Date: 20200914
  Receipt Date: 20200914
  Transmission Date: 20201103
  Serious: Yes (Death)
  Sender: FDA-Public Use
  Company Number: None

PATIENT
  Age: 81 Year
  Sex: Male

DRUGS (14)
  1. CARVEDILOL 25MG [Concomitant]
     Active Substance: CARVEDILOL
  2. FERROUS SULFATE 325MG [Concomitant]
     Active Substance: FERROUS SULFATE
  3. TAMSULOSIN 0.4MG [Concomitant]
     Active Substance: TAMSULOSIN
  4. ISOSORBIDE MN 30MG [Concomitant]
     Active Substance: ISOSORBIDE MONONITRATE
  5. FUROSEMIDE 40MG [Concomitant]
     Active Substance: FUROSEMIDE
  6. TRESIBA [Concomitant]
     Active Substance: INSULIN DEGLUDEC
  7. VASCAZEN 1G [Concomitant]
  8. ZOLPIDEM [Concomitant]
     Active Substance: ZOLPIDEM TARTRATE
  9. RAYALDEE [Suspect]
     Active Substance: CALCIFEDIOL
     Indication: HYPERPARATHYROIDISM
     Route: 048
     Dates: start: 20200429, end: 20200819
  10. HYDRALAZINE 25MG [Concomitant]
     Active Substance: HYDRALAZINE HYDROCHLORIDE
  11. OMEPRAZOLE 40MG [Concomitant]
     Active Substance: OMEPRAZOLE
  12. ELIQUIS [Concomitant]
     Active Substance: APIXABAN
  13. SODIUM BICARBONATE 650MG [Concomitant]
  14. TRULICITY 1.5MG/0.5ML [Concomitant]

REACTIONS (1)
  - Death [None]

NARRATIVE: CASE EVENT DATE: 20200914
